FAERS Safety Report 9011774 (Version 1)
Quarter: 2013Q1

REPORT INFORMATION
  Report Type: Spontaneous
  Country: US (occurrence: US)
  Receive Date: 20130113
  Receipt Date: 20130113
  Transmission Date: 20140127
  Serious: Yes (Other)
  Sender: FDA-Public Use
  Company Number: US-009507513-0907USA03832

PATIENT
  Age: 52 Year
  Sex: Female
  Weight: 67.59 kg

DRUGS (1)
  1. SINGULAIR [Suspect]
     Indication: MULTIPLE ALLERGIES
     Dosage: 10 MG, QD
     Route: 048
     Dates: start: 20060801, end: 20080201

REACTIONS (13)
  - Abnormal behaviour [Recovered/Resolved]
  - Blood pressure increased [Unknown]
  - Depression [Recovered/Resolved]
  - Electrocardiogram abnormal [Not Recovered/Not Resolved]
  - Feeling abnormal [Recovered/Resolved]
  - Heart rate increased [Unknown]
  - Insomnia [Recovered/Resolved]
  - Somnolence [Recovered/Resolved]
  - Nightmare [Recovered/Resolved]
  - Weight increased [Recovered/Resolved]
  - Aggression [Recovered/Resolved]
  - Surgery [Unknown]
  - Surgery [Unknown]
